FAERS Safety Report 8792257 (Version 2)
Quarter: 2015Q1

REPORT INFORMATION
  Report Type: Report from Study
  Country: US (occurrence: US)
  Receive Date: 20120918
  Receipt Date: 20150213
  Transmission Date: 20150721
  Serious: Yes (Death, Hospitalization, Other)
  Sender: FDA-Public Use
  Company Number: US-ROCHE-1128348

PATIENT
  Age: 56 Year
  Sex: Male
  Weight: 170 kg

DRUGS (29)
  1. AVASTIN [Suspect]
     Active Substance: BEVACIZUMAB
     Indication: PULMONARY EMBOLISM
  2. AVASTIN [Suspect]
     Active Substance: BEVACIZUMAB
     Indication: INFARCTION
  3. NEUPOGEN [Suspect]
     Active Substance: FILGRASTIM
     Route: 058
     Dates: start: 20080923
  4. ZANTAC [Concomitant]
     Active Substance: RANITIDINE HYDROCHLORIDE
     Route: 065
  5. ATROPINE SULFATE. [Concomitant]
     Active Substance: ATROPINE SULFATE
  6. IPRATROPIUM BROMIDE. [Concomitant]
     Active Substance: IPRATROPIUM BROMIDE
     Dosage: 0.02PC/2.5ML
     Route: 065
  7. TIOTROPIUM [Concomitant]
     Active Substance: TIOTROPIUM
     Route: 065
  8. CARBOPLATIN. [Concomitant]
     Active Substance: CARBOPLATIN
     Route: 065
  9. TAGAMET [Concomitant]
     Active Substance: CIMETIDINE
  10. COUMADIN (UNITED STATES) [Concomitant]
     Dosage: EVERY EVENING
     Route: 065
  11. PREDNISONE. [Concomitant]
     Active Substance: PREDNISONE
     Route: 065
  12. ALBUTEROL. [Concomitant]
     Active Substance: ALBUTEROL
     Dosage: 0.5MG/0.5ML
     Route: 065
  13. BENADRYL [Concomitant]
     Active Substance: DIPHENHYDRAMINE HYDROCHLORIDE
     Route: 065
  14. TAXOTERE [Concomitant]
     Active Substance: DOCETAXEL
     Route: 065
  15. AMBIEN [Concomitant]
     Active Substance: ZOLPIDEM TARTRATE
     Dosage: PO Q HRS
     Route: 065
  16. DECADRON [Concomitant]
     Active Substance: DEXAMETHASONE
  17. NEULASTA [Suspect]
     Active Substance: PEGFILGRASTIM
     Indication: PRODUCT USED FOR UNKNOWN INDICATION
     Route: 058
     Dates: start: 20080922
  18. NEUPOGEN [Suspect]
     Active Substance: FILGRASTIM
     Indication: PRODUCT USED FOR UNKNOWN INDICATION
     Route: 058
     Dates: start: 20080923
  19. MEGESTROL [Concomitant]
     Active Substance: MEGESTROL
     Dosage: 40MG/ML
     Route: 065
  20. ZOFRAN [Concomitant]
     Active Substance: ONDANSETRON HYDROCHLORIDE
     Dosage: 16MG/8ML SODIUM CHLORIDE 0.9% 100ML
     Route: 042
  21. MARINOL (UNITED STATES) [Concomitant]
     Indication: INCREASED APPETITE
     Route: 065
  22. AUGMENTIN [Concomitant]
     Active Substance: AMOXICILLIN\CLAVULANATE POTASSIUM
     Dosage: 1000/62.5 2 TABLETS
     Route: 065
  23. LORTAB [Concomitant]
     Active Substance: ACETAMINOPHEN\HYDROCODONE BITARTRATE
     Dosage: 7.5/500MG ?AS REQUIRED
     Route: 065
  24. SPIRIVA [Concomitant]
     Active Substance: TIOTROPIUM BROMIDE MONOHYDRATE
     Route: 065
  25. AVASTIN [Suspect]
     Active Substance: BEVACIZUMAB
     Indication: LUNG NEOPLASM MALIGNANT
     Route: 042
  26. FLORINEF ACETATE [Concomitant]
     Active Substance: FLUDROCORTISONE ACETATE
     Route: 065
  27. ALOXI [Concomitant]
     Active Substance: PALONOSETRON HYDROCHLORIDE
  28. ATROVENT [Concomitant]
     Active Substance: IPRATROPIUM BROMIDE
  29. MEGACE [Concomitant]
     Active Substance: MEGESTROL ACETATE
     Indication: INCREASED APPETITE
     Route: 065

REACTIONS (13)
  - Brain oedema [Unknown]
  - Wound complication [Unknown]
  - Pain in extremity [Unknown]
  - Dyspnoea [Recovered/Resolved]
  - Pneumonia [Unknown]
  - Death [Fatal]
  - Impaired healing [Unknown]
  - Generalised tonic-clonic seizure [Unknown]
  - Orthostatic hypotension [Unknown]
  - Decreased appetite [Unknown]
  - Metastases to central nervous system [Unknown]
  - Weight decreased [Unknown]
  - Radiation pneumonitis [Unknown]

NARRATIVE: CASE EVENT DATE: 20081211
